FAERS Safety Report 12491220 (Version 1)
Quarter: 2016Q2

REPORT INFORMATION
  Report Type: Spontaneous
  Country: SG (occurrence: SG)
  Receive Date: 20160623
  Receipt Date: 20160623
  Transmission Date: 20160815
  Serious: Yes (Other)
  Sender: FDA-Public Use
  Company Number: SG-ALVOGEN-2016-ALVOGEN-025020

PATIENT
  Age: 72 Year
  Sex: Female

DRUGS (1)
  1. NIFEDIPINE. [Suspect]
     Active Substance: NIFEDIPINE
     Indication: HYPERTENSION

REACTIONS (1)
  - Subacute cutaneous lupus erythematosus [Recovered/Resolved]
